FAERS Safety Report 5305292-2 (Version None)
Quarter: 2007Q2

REPORT INFORMATION
  Report Type: 
  Country: None (occurrence: None)
  Receive Date: 20070424
  Receipt Date: 20070409
  Transmission Date: 20071010
  Serious: Yes (Other)
  Sender: FDA-Public Use
  Company Number: PHEH2007US04646

PATIENT
  Age: 36 Year
  Sex: Female

DRUGS (1)
  1. ZELNORM [Suspect]
     Route: 048

REACTIONS (5)
  - DIZZINESS [None]
  - FATIGUE [None]
  - HEADACHE [None]
  - HYPOAESTHESIA FACIAL [None]
  - NERVOUS SYSTEM DISORDER [None]
